FAERS Safety Report 14457306 (Version 2)
Quarter: 2018Q4

REPORT INFORMATION
  Report Type: Report from Study
  Country: FR (occurrence: FR)
  Receive Date: 20180130
  Receipt Date: 20181102
  Transmission Date: 20190204
  Serious: Yes (Death, Hospitalization, Other)
  Sender: FDA-Public Use
  Company Number: FR-JAZZ-2018-FR-001556

PATIENT

DRUGS (1)
  1. DEFITELIO [Suspect]
     Active Substance: DEFIBROTIDE SODIUM
     Indication: VENOOCCLUSIVE DISEASE
     Dosage: 10 MG/KG, QD
     Route: 042
     Dates: start: 20170523, end: 20170615

REACTIONS (6)
  - Multiple organ dysfunction syndrome [Fatal]
  - Hepatitis acute [Unknown]
  - Hypernatraemia [Unknown]
  - Atrial fibrillation [Unknown]
  - Oedema [Unknown]
  - Lower respiratory tract congestion [Unknown]

NARRATIVE: CASE EVENT DATE: 201705
